FAERS Safety Report 23915597 (Version 1)
Quarter: 2024Q2

REPORT INFORMATION
  Report Type: Spontaneous
  Country: US (occurrence: None)
  Receive Date: 20240528
  Receipt Date: 20240528
  Transmission Date: 20240715
  Serious: Yes (Other)
  Sender: FDA-Public Use
  Company Number: None

PATIENT
  Age: 70 Year
  Sex: Female
  Weight: 72 kg

DRUGS (2)
  1. PRALUENT [Suspect]
     Active Substance: ALIROCUMAB
     Indication: Blood cholesterol
     Dosage: OTHER FREQUENCY : ONCE A MONTH;?
     Route: 030
  2. REPATHA [Suspect]
     Active Substance: EVOLOCUMAB
     Indication: Blood cholesterol
     Dosage: OTHER FREQUENCY : ONCE PER MONTH;?
     Route: 030

REACTIONS (4)
  - Pyrexia [None]
  - Vomiting [None]
  - Hypophagia [None]
  - Asthenia [None]

NARRATIVE: CASE EVENT DATE: 20240512
